FAERS Safety Report 9234142 (Version 1)
Quarter: 2013Q2

REPORT INFORMATION
  Report Type: Report from Study
  Country: CA (occurrence: CA)
  Receive Date: 20130416
  Receipt Date: 20130416
  Transmission Date: 20140414
  Serious: Yes (Life-Threatening, Hospitalization)
  Sender: FDA-Public Use
  Company Number: CA-ROCHE-1212678

PATIENT
  Age: 64 Year
  Sex: Female
  Weight: 68 kg

DRUGS (7)
  1. ACTEMRA [Suspect]
     Indication: RHEUMATOID ARTHRITIS
     Route: 042
     Dates: start: 20120504, end: 20130111
  2. LISINOPRIL [Concomitant]
  3. CELEBREX [Concomitant]
  4. PLAQUENIL [Concomitant]
  5. FOLIC ACID [Concomitant]
  6. METHOTREXATE [Concomitant]
     Route: 048
  7. VITAMIN C [Concomitant]

REACTIONS (3)
  - Meningitis bacterial [Recovering/Resolving]
  - Sepsis [Recovering/Resolving]
  - Immune system disorder [Recovering/Resolving]
